FAERS Safety Report 7774731-X (Version None)
Quarter: 2011Q3

REPORT INFORMATION
  Report Type: 
  Country: None (occurrence: None)
  Receive Date: 20110923
  Receipt Date: 20110920
  Transmission Date: 20111222
  Serious: Yes (Hospitalization, Other)
  Sender: FDA-Public Use
  Company Number: CHPA2011US12810

PATIENT
  Age: 53 Year
  Sex: Female

DRUGS (2)
  1. PHENYLEPHRINE HCL [Suspect]
     Indication: HYPERSENSITIVITY
     Dosage: 1 DF, IN THE NOSTRIL
     Route: 045
  2. PHENYLEPHRINE HCL [Suspect]
     Indication: NASOPHARYNGITIS

REACTIONS (3)
  - VOMITING [None]
  - APPENDICECTOMY [None]
  - DRUG DEPENDENCE [None]
